FAERS Safety Report 15355195 (Version 1)
Quarter: 2018Q3

REPORT INFORMATION
  Report Type: Spontaneous
  Country: DK (occurrence: DK)
  Receive Date: 20180906
  Receipt Date: 20180906
  Transmission Date: 20181010
  Serious: Yes (Hospitalization)
  Sender: FDA-Public Use
  Company Number: DK-ROCHE-2181148

PATIENT
  Age: 55 Year
  Sex: Female
  Weight: 64 kg

DRUGS (1)
  1. XOLAIR [Suspect]
     Active Substance: OMALIZUMAB
     Indication: URTICARIA
     Dosage: 450 MG, QMO (1 INJ 1 TIME PER MONTH, 300 MG FIRST TIME, 450 MG THE NEXT 5 TIMES)
     Route: 058
     Dates: start: 20180125, end: 20180625

REACTIONS (7)
  - Anaemia [Unknown]
  - Muscular weakness [Not Recovered/Not Resolved]
  - Leukopenia [Unknown]
  - Lymphopenia [Unknown]
  - Pain [Unknown]
  - Eyelid ptosis [Unknown]
  - SLE arthritis [Not Recovered/Not Resolved]

NARRATIVE: CASE EVENT DATE: 201806
